FAERS Safety Report 6635411-7 (Version None)
Quarter: 2010Q1

REPORT INFORMATION
  Report Type: 
  Country: None (occurrence: None)
  Receive Date: 20100315
  Receipt Date: 20090903
  Transmission Date: 20100710
  Serious: Yes (Other)
  Sender: FDA-Public Use
  Company Number: US-ABBOTT-09P-163-0595378-00

PATIENT
  Sex: Female
  Weight: 100.79 kg

DRUGS (2)
  1. DEPAKOTE [Suspect]
     Indication: DEPRESSION
     Route: 048
     Dates: start: 20050101, end: 20050101
  2. DEPAKOTE [Suspect]
     Indication: AFFECTIVE DISORDER

REACTIONS (2)
  - SUICIDAL IDEATION [None]
  - WEIGHT INCREASED [None]
